FAERS Safety Report 5025365-1 (Version None)
Quarter: 2006Q2

REPORT INFORMATION
  Report Type: 
  Country: None (occurrence: None)
  Receive Date: 20060426
  Receipt Date: 20060303
  Transmission Date: 20061013
  Serious: Yes (Other)
  Sender: FDA-Public Use
  Company Number: 2006006334

PATIENT
  Age: 41 Year
  Sex: Female
  Weight: 56.6996 kg

DRUGS (1)
  1. LYRICA [Suspect]
     Indication: FIBROMYALGIA
     Dosage: 50 MG (25 MG,2 IN 1 D),ORAL
     Route: 048
     Dates: start: 20051024, end: 20060211

REACTIONS (3)
  - ABDOMINAL DISTENSION [None]
  - ASTHENIA [None]
  - FLATULENCE [None]
